FAERS Safety Report 5825157-7 (Version None)
Quarter: 2008Q3

REPORT INFORMATION
  Report Type: 
  Country: None (occurrence: None)
  Receive Date: 20080729
  Receipt Date: 20080716
  Transmission Date: 20090109
  Serious: Yes (Life-Threatening, Hospitalization)
  Sender: FDA-Public Use
  Company Number: JP-PURDUE-MAG_2007_0000610

PATIENT
  Age: 26 Year
  Sex: Female

DRUGS (10)
  1. THEOPHYLLINE [Suspect]
     Indication: DRUG USE FOR UNKNOWN INDICATION
     Dosage: 400 MG, DAILY
     Route: 048
     Dates: start: 20071009, end: 20071118
  2. FLUTICASONE PROPIONATE [Concomitant]
     Indication: ASTHMA
     Dosage: 4 PUFF, DAILY
     Route: 055
     Dates: start: 20071009, end: 20071217
  3. SALMETEROL XINAFOATE [Concomitant]
     Indication: ASTHMA
     Dosage: UNK, PRN
     Route: 055
     Dates: start: 20071009, end: 20071217
  4. OLOPATADINE HYDROCHLORIDE [Concomitant]
     Indication: ASTHMA
     Dosage: 5 MG, DAILY
     Route: 048
     Dates: start: 20071009, end: 20071026
  5. ISOCONAZOLE NITRATE [Concomitant]
     Indication: CANDIDIASIS
     Route: 061
     Dates: start: 20080121, end: 20080121
  6. KETOCONAZOLE [Concomitant]
     Indication: CANDIDIASIS
     Route: 061
     Dates: start: 20080121, end: 20080121
  7. FERROUS FUMARATE [Concomitant]
     Indication: ANAEMIA
     Route: 048
     Dates: start: 20080402, end: 20080429
  8. TIPEPIDINE HIBENZATE [Concomitant]
     Indication: UPPER RESPIRATORY TRACT INFLAMMATION
     Dosage: .9 GRAM, UNK
     Route: 048
     Dates: start: 20080425, end: 20080506
  9. NON-PYRINE PREPARATION [Concomitant]
     Indication: UPPER RESPIRATORY TRACT INFLAMMATION
     Dosage: 3 GRAM, UNK
     Route: 048
     Dates: start: 20080425, end: 20080501
  10. BAKUMONDOUTO [Concomitant]
     Indication: UPPER RESPIRATORY TRACT INFLAMMATION
     Dosage: 9 GRAM, UNK
     Route: 048

REACTIONS (4)
  - ANAEMIA [None]
  - DRUG EXPOSURE DURING PREGNANCY [None]
  - NORMAL NEWBORN [None]
  - POSTPARTUM HAEMORRHAGE [None]
